FAERS Safety Report 19048090 (Version 1)
Quarter: 2021Q1

REPORT INFORMATION
  Report Type: Report from Study
  Country: FR (occurrence: FR)
  Receive Date: 20210324
  Receipt Date: 20210324
  Transmission Date: 20210420
  Serious: Yes (Life-Threatening, Hospitalization, Other)
  Sender: FDA-Public Use
  Company Number: FR-AMGEN-FRANI2021043667

PATIENT
  Age: 69 Year
  Sex: Male
  Weight: 84 kg

DRUGS (8)
  1. OXYCONTIN [Concomitant]
     Active Substance: OXYCODONE HYDROCHLORIDE
  2. PERINDOPRIL [Concomitant]
     Active Substance: PERINDOPRIL
     Route: 048
  3. BEVACIZUMAB. [Suspect]
     Active Substance: BEVACIZUMAB
     Indication: HEPATOCELLULAR CARCINOMA
     Dosage: 1250 MILLIGRAM, QD(2 CYCLES ADMINISTEREDON 04/NOV/2020, HE RECEIVED SECOND CYCLE OF BEVACIZUMAB)
     Route: 042
     Dates: start: 20201014
  4. AMLODIPINE [Concomitant]
     Active Substance: AMLODIPINE BESYLATE
  5. LANSOPRAZOLE. [Concomitant]
     Active Substance: LANSOPRAZOLE
  6. MACROGOL [Concomitant]
     Active Substance: POLYETHYLENE GLYCOLS
  7. ATEZOLIZUMAB. [Suspect]
     Active Substance: ATEZOLIZUMAB
     Indication: HEPATOCELLULAR CARCINOMA
     Dosage: 1200 MILLIGRAM
     Route: 041
     Dates: start: 20201014
  8. ALFUZOSIN [Concomitant]
     Active Substance: ALFUZOSIN
     Dosage: UNK

REACTIONS (2)
  - Haemodynamic instability [Not Recovered/Not Resolved]
  - Haemothorax [Not Recovered/Not Resolved]

NARRATIVE: CASE EVENT DATE: 20201108
